FAERS Safety Report 24529105 (Version 1)
Quarter: 2024Q4

REPORT INFORMATION
  Report Type: Spontaneous
  Country: US (occurrence: None)
  Receive Date: 20241021
  Receipt Date: 20241021
  Transmission Date: 20250115
  Serious: Yes (Hospitalization)
  Sender: Public
  Company Number: None

PATIENT
  Sex: Female

DRUGS (5)
  1. AMBRISENTAN [Suspect]
     Active Substance: AMBRISENTAN
     Route: 048
     Dates: start: 202311
  2. SILDENAFIL CITRATE [Suspect]
     Active Substance: SILDENAFIL CITRATE
     Dosage: FREQUENCY : TWICE A DAY;?
     Route: 048
     Dates: start: 202112
  3. SILDENAFIL CITRATE [Concomitant]
  4. REMODULIN MDV [Concomitant]
  5. DEVICE [Suspect]
     Active Substance: DEVICE

REACTIONS (3)
  - Device occlusion [None]
  - Therapy interrupted [None]
  - Device infusion issue [None]
